FAERS Safety Report 7552278-3 (Version None)
Quarter: 2011Q2

REPORT INFORMATION
  Report Type: 
  Country: None (occurrence: None)
  Receive Date: 20110616
  Receipt Date: 20050203
  Transmission Date: 20111010
  Serious: Yes (Disabling)
  Sender: FDA-Public Use
  Company Number: PHHO2005JP00598

PATIENT
  Sex: Female
  Weight: 57 kg

DRUGS (6)
  1. TICLOPIDINE HCL [Concomitant]
     Indication: CEREBROVASCULAR DISORDER
     Dates: start: 20011004
  2. DIOVAN [Suspect]
     Indication: HYPERTENSION
     Dosage: 80 MG, UNK
     Dates: start: 20030217
  3. BASEN [Concomitant]
     Indication: DIABETES MELLITUS
     Dates: start: 20020414
  4. ATELEC [Concomitant]
     Indication: HYPERTENSION
     Dates: start: 20020415
  5. MUCOSTA [Concomitant]
     Indication: GASTRITIS
     Dates: start: 20020414
  6. URSOSAN [Concomitant]
     Indication: LIVER DISORDER
     Dates: start: 20020318

REACTIONS (3)
  - CEREBRAL INFARCTION [None]
  - HEMIPLEGIA [None]
  - THROMBOTIC STROKE [None]
